FAERS Safety Report 4593917-9 (Version None)
Quarter: 2005Q1

REPORT INFORMATION
  Report Type: 
  Country: None (occurrence: None)
  Receive Date: 20050222
  Receipt Date: 20050202
  Transmission Date: 20050727
  Serious: Yes (Hospitalization)
  Sender: FDA-Public Use
  Company Number: 601816

PATIENT
  Age: 76 Year
  Sex: Female

DRUGS (1)
  1. GAMMAGARD S/D [Suspect]
     Dosage: 10 GM; ONCE; INTRAVENOUS
     Route: 042
     Dates: start: 20050125, end: 20050125

REACTIONS (2)
  - INFUSION RELATED REACTION [None]
  - MONOPARESIS [None]
